FAERS Safety Report 12486401 (Version 1)
Quarter: 2016Q2

REPORT INFORMATION
  Report Type: Report from Study
  Country: US (occurrence: US)
  Receive Date: 20160621
  Receipt Date: 20160621
  Transmission Date: 20160815
  Serious: Yes (Other)
  Sender: FDA-Public Use
  Company Number: US-ABBVIE-16K-163-1651637-00

PATIENT
  Age: 51 Year
  Sex: Female

DRUGS (2)
  1. HUMIRA [Suspect]
     Active Substance: ADALIMUMAB
     Indication: ANKYLOSING SPONDYLITIS
     Route: 058
     Dates: start: 2015, end: 201507
  2. HUMIRA [Suspect]
     Active Substance: ADALIMUMAB
     Indication: PSORIATIC ARTHROPATHY
     Route: 058
     Dates: start: 201604

REACTIONS (10)
  - Musculoskeletal stiffness [Recovered/Resolved]
  - Arthralgia [Unknown]
  - Activities of daily living impaired [Unknown]
  - Joint swelling [Unknown]
  - Fatigue [Unknown]
  - Local swelling [Unknown]
  - Intervertebral disc disorder [Unknown]
  - Emotional disorder [Unknown]
  - Mobility decreased [Unknown]
  - Pain in extremity [Unknown]

NARRATIVE: CASE EVENT DATE: 201507
